FAERS Safety Report 6177452-2 (Version None)
Quarter: 2009Q2

REPORT INFORMATION
  Report Type: 
  Country: None (occurrence: None)
  Receive Date: 20090501
  Receipt Date: 20090501
  Transmission Date: 20091009
  Serious: Yes (Hospitalization)
  Sender: FDA-Public Use
  Company Number: None

PATIENT
  Age: 58 Year
  Sex: Male
  Weight: 87 kg

DRUGS (6)
  1. ASPARAGINASE [Suspect]
     Indication: ACUTE LYMPHOCYTIC LEUKAEMIA
     Dosage: 20,000 UNITS IM Q WK
     Route: 030
     Dates: start: 20090203, end: 20090210
  2. METHOTREXATE [Concomitant]
  3. VORICONAZOLE [Concomitant]
  4. ACYCLOVIR [Concomitant]
  5. BACTRIM [Concomitant]
  6. NEURONTIN [Concomitant]

REACTIONS (4)
  - ATAXIA [None]
  - DYSARTHRIA [None]
  - FALL [None]
  - INFLUENZA LIKE ILLNESS [None]
